FAERS Safety Report 16972218 (Version 4)
Quarter: 2020Q1

REPORT INFORMATION
  Report Type: Spontaneous
  Country: US (occurrence: US)
  Receive Date: 20191029
  Receipt Date: 20200116
  Transmission Date: 20200409
  Serious: No
  Sender: FDA-Public Use
  Company Number: US-ACTELION-A-NJ2019-197117

PATIENT
  Sex: Female
  Weight: 96.6 kg

DRUGS (4)
  1. SILDENAFIL. [Concomitant]
     Active Substance: SILDENAFIL
  2. NIFEDIPINE. [Concomitant]
     Active Substance: NIFEDIPINE
  3. UPTRAVI [Suspect]
     Active Substance: SELEXIPAG
     Indication: PULMONARY ARTERIAL HYPERTENSION
     Dosage: 200MCG IN AM AND 400MCG IN PM
     Route: 048
  4. UPTRAVI [Suspect]
     Active Substance: SELEXIPAG
     Dosage: UNK
     Route: 048

REACTIONS (6)
  - Malaise [Recovering/Resolving]
  - Cough [Unknown]
  - Hypertension [Recovering/Resolving]
  - Renal disorder [Unknown]
  - Treatment noncompliance [Unknown]
  - Asthenia [Recovering/Resolving]
